FAERS Safety Report 18754745 (Version 5)
Quarter: 2021Q2

REPORT INFORMATION
  Report Type: Report from Study
  Country: None (occurrence: US)
  Receive Date: 20210119
  Receipt Date: 20210518
  Transmission Date: 20210717
  Serious: Yes (Hospitalization)
  Sender: FDA-Public Use
  Company Number: US-ABBVIE-21K-163-3728915-00

PATIENT
  Age: 66 Year
  Sex: Female

DRUGS (3)
  1. VENCLEXTA [Suspect]
     Active Substance: VENETOCLAX
     Indication: ACUTE MYELOID LEUKAEMIA
     Route: 048
     Dates: start: 20201231, end: 20210317
  2. AZACITIDINE. [Concomitant]
     Active Substance: AZACITIDINE
     Indication: ACUTE MYELOID LEUKAEMIA
  3. DECITABINE. [Concomitant]
     Active Substance: DECITABINE
     Indication: ACUTE MYELOID LEUKAEMIA

REACTIONS (24)
  - Haemoglobin decreased [Unknown]
  - Malaise [Not Recovered/Not Resolved]
  - Febrile neutropenia [Recovered/Resolved]
  - Oxygen saturation abnormal [Unknown]
  - Palpitations [Unknown]
  - White blood cell count decreased [Recovering/Resolving]
  - Illness [Unknown]
  - Neutrophil count decreased [Recovering/Resolving]
  - Asthenia [Not Recovered/Not Resolved]
  - Palpitations [Recovered/Resolved]
  - Nausea [Not Recovered/Not Resolved]
  - Weight decreased [Not Recovered/Not Resolved]
  - Tremor [Unknown]
  - Asthenia [Unknown]
  - Body temperature increased [Unknown]
  - Vomiting [Unknown]
  - Platelet count decreased [Recovering/Resolving]
  - Red blood cell count decreased [Recovering/Resolving]
  - Vomiting [Not Recovered/Not Resolved]
  - Dyspnoea [Unknown]
  - Bacterial test positive [Unknown]
  - Nervousness [Unknown]
  - Pruritus [Unknown]
  - Fatigue [Unknown]

NARRATIVE: CASE EVENT DATE: 2021
